FAERS Safety Report 24675439 (Version 1)
Quarter: 2024Q4

REPORT INFORMATION
  Report Type: Spontaneous
  Country: PL (occurrence: PL)
  Receive Date: 20241128
  Receipt Date: 20241128
  Transmission Date: 20250115
  Serious: Yes (Life-Threatening)
  Sender: ELI LILLY AND COMPANY
  Company Number: None

PATIENT
  Age: 61 Year
  Sex: Male
  Weight: 112 kg

DRUGS (2)
  1. ERBITUX [Suspect]
     Active Substance: CETUXIMAB
     Indication: Colon cancer
     Dosage: 1150 MG, UNK
     Route: 042
     Dates: start: 20240829, end: 20240829
  2. ERBITUX [Suspect]
     Active Substance: CETUXIMAB
     Dosage: 1150 MG, UNK
     Route: 042
     Dates: start: 20240829, end: 20240829

REACTIONS (4)
  - Erythema [Recovered/Resolved]
  - Dyspnoea [Recovered/Resolved]
  - Hypotonia [Recovered/Resolved]
  - Urticaria [Recovered/Resolved]
